FAERS Safety Report 6564809-0 (Version None)
Quarter: 2010Q1

REPORT INFORMATION
  Report Type: 
  Country: None (occurrence: None)
  Receive Date: 20100201
  Receipt Date: 20100118
  Transmission Date: 20100710
  Serious: Yes (Death, Hospitalization)
  Sender: FDA-Public Use
  Company Number: KR-PFIZER INC-2009262154

PATIENT
  Age: 63 Year
  Sex: Female
  Weight: 63 kg

DRUGS (5)
  1. VORICONAZOLE [Suspect]
     Indication: ASPERGILLOSIS
     Dosage: 200 MG, 2X/DAY
     Route: 042
     Dates: start: 20080313, end: 20080426
  2. IMIPENEM [Concomitant]
     Indication: PNEUMONIA
     Dosage: 0.5 G, 4X/DAY
     Route: 042
     Dates: start: 20080304, end: 20080317
  3. HYDROCHLOROTHIAZIDE [Concomitant]
     Indication: OEDEMA
     Dosage: 12.5 MG, 1X/DAY
     Route: 048
     Dates: start: 20080313, end: 20080331
  4. CODEINE [Concomitant]
     Indication: COUGH
     Dosage: 40 MG, 3X/DAY
     Route: 048
     Dates: start: 20080303, end: 20080331
  5. ALL OTHER THERAPEUTIC PRODUCTS [Concomitant]
     Dosage: 30 MG, 1X/DAY
     Dates: start: 20080303, end: 20090331

REACTIONS (2)
  - ANAEMIA [None]
  - PNEUMONIA [None]
